FAERS Safety Report 23219036 (Version 3)
Quarter: 2024Q1

REPORT INFORMATION
  Report Type: Report from Study
  Country: ZA (occurrence: ZA)
  Receive Date: 20231122
  Receipt Date: 20240208
  Transmission Date: 20240410
  Serious: Yes (Hospitalization, Other)
  Sender: FDA-Public Use
  Company Number: ZA-TAKEDA-2023TUS112489

PATIENT
  Age: 60 Year
  Sex: Male

DRUGS (2)
  1. VEDOLIZUMAB [Suspect]
     Active Substance: VEDOLIZUMAB
     Indication: Crohn^s disease
     Dosage: 300 MILLIGRAM
     Route: 042
     Dates: start: 20231031
  2. ASACOL [Concomitant]
     Active Substance: MESALAMINE
     Dosage: 800 GRAM

REACTIONS (5)
  - Crohn^s disease [Unknown]
  - Cyst [Unknown]
  - Fistula [Unknown]
  - Post procedural infection [Unknown]
  - Inappropriate schedule of product administration [Unknown]
